FAERS Safety Report 9304222 (Version 1)
Quarter: 2013Q2

REPORT INFORMATION
  Report Type: Spontaneous
  Country: IN (occurrence: IN)
  Receive Date: 20130522
  Receipt Date: 20130522
  Transmission Date: 20140414
  Serious: Yes (Hospitalization)
  Sender: FDA-Public Use
  Company Number: IN-MYLANLABS-2013S1010433

PATIENT
  Age: 16 Year
  Sex: Male
  Weight: 45 kg

DRUGS (1)
  1. OLANZAPINE [Suspect]
     Indication: INTENTIONAL OVERDOSE
     Dosage: 750MG (50 X 15MG TABLETS)
     Route: 048

REACTIONS (10)
  - Tachycardia [Recovered/Resolved]
  - Hypotension [Recovered/Resolved]
  - Myoclonus [Recovered/Resolved]
  - Hyperpyrexia [Recovered/Resolved]
  - Muscle rigidity [Recovered/Resolved]
  - Leukocytosis [Recovered/Resolved]
  - Blood creatine phosphokinase increased [Recovered/Resolved]
  - Intentional overdose [Recovered/Resolved]
  - Loss of consciousness [Recovered/Resolved]
  - Suicide attempt [Recovered/Resolved]
